FAERS Safety Report 6753505-2 (Version None)
Quarter: 2010Q2

REPORT INFORMATION
  Report Type: 
  Country: None (occurrence: None)
  Receive Date: 20100603
  Receipt Date: 20100503
  Transmission Date: 20101027
  Serious: No
  Sender: FDA-Public Use
  Company Number: US-BAYER-201015156BCC

PATIENT
  Age: 24 Year
  Sex: Male
  Weight: 107 kg

DRUGS (3)
  1. ALEVE [Suspect]
     Indication: DRUG USE FOR UNKNOWN INDICATION
     Dosage: TOTAL DAILY DOSE: 220 MG  UNIT DOSE: 220 MG
     Route: 048
     Dates: start: 20100502
  2. IBUPROFEN [Concomitant]
  3. HYDROCODONE [Concomitant]
     Dates: start: 20100401

REACTIONS (3)
  - LIP SWELLING [None]
  - PRURITUS [None]
  - SWELLING FACE [None]
